FAERS Safety Report 6238726-X (Version None)
Quarter: 2009Q2

REPORT INFORMATION
  Report Type: 
  Country: None (occurrence: None)
  Receive Date: 20090617
  Receipt Date: 20090617
  Transmission Date: 20091009
  Serious: Yes (Other)
  Sender: FDA-Public Use
  Company Number: None

PATIENT
  Age: 19 Year
  Sex: Female
  Weight: 74.8435 kg

DRUGS (1)
  1. ZICAM NASAL GEL [Suspect]
     Indication: NASOPHARYNGITIS
     Dosage: 1 SQUEEZE 3 TIMES DAILY (DURATION: AS LONG AS A COLD LASTS)
     Dates: start: 20070615, end: 20090601

REACTIONS (1)
  - HYPOSMIA [None]
